FAERS Safety Report 6416737-9 (Version None)
Quarter: 2009Q4

REPORT INFORMATION
  Report Type: 
  Country: None (occurrence: None)
  Receive Date: 20091027
  Receipt Date: 20091013
  Transmission Date: 20100525
  Serious: Yes (Life-Threatening, Hospitalization, Other)
  Sender: FDA-Public Use
  Company Number: CA-GENENTECH-289098

PATIENT
  Sex: Male

DRUGS (1)
  1. XOLAIR [Suspect]
     Indication: ASTHMA
     Dosage: 150 MG, 1/MONTH
     Route: 064
     Dates: start: 20080201

REACTIONS (12)
  - ARTERIAL OCCLUSIVE DISEASE [None]
  - BRONCHIOLITIS [None]
  - CARDIAC DISORDER [None]
  - DRUG EXPOSURE DURING PREGNANCY [None]
  - FOETAL GROWTH RETARDATION [None]
  - FOETAL HEART RATE DECELERATION [None]
  - HYPOGLYCAEMIA [None]
  - LUNG DISORDER [None]
  - MALAISE [None]
  - PULMONARY HYPERTENSION [None]
  - RESUSCITATION [None]
  - STREPTOCOCCAL INFECTION [None]
